FAERS Safety Report 6666630-1 (Version None)
Quarter: 2010Q2

REPORT INFORMATION
  Report Type: 
  Country: None (occurrence: None)
  Receive Date: 20100405
  Receipt Date: 20100325
  Transmission Date: 20101027
  Serious: Yes (Hospitalization)
  Sender: FDA-Public Use
  Company Number: US-BIOGENIDEC-2010BI010519

PATIENT
  Age: 38 Year
  Sex: Female
  Weight: 68 kg

DRUGS (2)
  1. TYSABRI [Suspect]
     Indication: MULTIPLE SCLEROSIS
     Route: 042
     Dates: end: 20091101
  2. TYSABRI [Suspect]
     Route: 042
     Dates: start: 20100201

REACTIONS (7)
  - COLLAPSE OF LUNG [None]
  - LOWER LIMB FRACTURE [None]
  - MOBILITY DECREASED [None]
  - PUBIS FRACTURE [None]
  - RIB FRACTURE [None]
  - ROAD TRAFFIC ACCIDENT [None]
  - TRAUMATIC LIVER INJURY [None]
